FAERS Safety Report 19252593 (Version 3)
Quarter: 2021Q3

REPORT INFORMATION
  Report Type: Spontaneous
  Country: US (occurrence: US)
  Receive Date: 20210512
  Receipt Date: 20210707
  Transmission Date: 20211014
  Serious: No
  Sender: FDA-Public Use
  Company Number: US-ASTRAZENECA-2021A414499

PATIENT
  Sex: Female
  Weight: 73.5 kg

DRUGS (1)
  1. BYDUREON BCISE [Suspect]
     Active Substance: EXENATIDE
     Indication: DIABETES MELLITUS
     Route: 065
     Dates: start: 20210429

REACTIONS (6)
  - Device delivery system issue [Unknown]
  - Device use confusion [Unknown]
  - Wrong technique in device usage process [Unknown]
  - Injection site haemorrhage [Unknown]
  - Vascular injury [Unknown]
  - Device malfunction [Unknown]

NARRATIVE: CASE EVENT DATE: 20210506
